FAERS Safety Report 5368009-1 (Version None)
Quarter: 2007Q2

REPORT INFORMATION
  Report Type: 
  Country: None (occurrence: None)
  Receive Date: 20070622
  Receipt Date: 20070612
  Transmission Date: 20071010
  Serious: Yes (Hospitalization, Other)
  Sender: FDA-Public Use
  Company Number: FR-PFIZER INC-2007048534

PATIENT
  Age: 29 Year
  Sex: Female

DRUGS (3)
  1. LYRICA [Suspect]
     Indication: MIGRAINE
     Dosage: DAILY DOSE:900MG
  2. LAROXYL [Concomitant]
  3. ACETAMINOPHEN W/ PROPOXYPHENE HCL [Concomitant]

REACTIONS (6)
  - BALANCE DISORDER [None]
  - DIPLOPIA [None]
  - NAUSEA [None]
  - NYSTAGMUS [None]
  - OVERDOSE [None]
  - VERTIGO [None]
